FAERS Safety Report 9317188 (Version 1)
Quarter: 2013Q2

REPORT INFORMATION
  Report Type: Spontaneous
  Country: US (occurrence: US)
  Receive Date: 20130530
  Receipt Date: 20130530
  Transmission Date: 20140414
  Serious: No
  Sender: FDA-Public Use
  Company Number: US-NOVEN-12US004596

PATIENT
  Age: 8 Year
  Sex: Female

DRUGS (3)
  1. DAYTRANA [Suspect]
     Indication: ATTENTION DEFICIT/HYPERACTIVITY DISORDER
     Dosage: 15 MG, UNK
     Route: 062
     Dates: start: 201202
  2. ZYRTEC [Concomitant]
     Indication: MULTIPLE ALLERGIES
  3. SINGULAIR [Concomitant]
     Indication: MULTIPLE ALLERGIES

REACTIONS (2)
  - Application site erythema [Not Recovered/Not Resolved]
  - Product quality issue [Not Recovered/Not Resolved]
